FAERS Safety Report 19685661 (Version 1)
Quarter: 2021Q3

REPORT INFORMATION
  Report Type: Spontaneous
  Country: US (occurrence: US)
  Receive Date: 20210810
  Receipt Date: 20210810
  Transmission Date: 20211014
  Serious: Yes (Hospitalization)
  Sender: FDA-Public Use
  Company Number: None

PATIENT
  Sex: Male

DRUGS (2)
  1. MYCOPHENOLATE  500MG ROXANE [Suspect]
     Active Substance: MYCOPHENOLATE MOFETIL
     Indication: HYPOKALAEMIA
     Route: 048
     Dates: start: 202104
  2. MYCOPHENOLATE  500MG ROXANE [Suspect]
     Active Substance: MYCOPHENOLATE MOFETIL
     Indication: HYPOMAGNESAEMIA
     Route: 048
     Dates: start: 202104

REACTIONS (1)
  - Hospitalisation [None]
